FAERS Safety Report 6829963-1 (Version None)
Quarter: 2010Q3

REPORT INFORMATION
  Report Type: 
  Country: None (occurrence: None)
  Receive Date: 20100711
  Receipt Date: 20100427
  Transmission Date: 20110219
  Serious: No
  Sender: FDA-Public Use
  Company Number: US-ALLERGAN-1004789US

PATIENT
  Age: 55 Year
  Sex: Female

DRUGS (3)
  1. LATISSE [Suspect]
     Indication: GROWTH OF EYELASHES
     Dosage: 1 GTT, QHS
     Route: 061
     Dates: end: 20100419
  2. LATISSE [Suspect]
     Dosage: 1 GTT, QOD
     Route: 061
     Dates: start: 20100420
  3. REFRESH PLUS [Concomitant]

REACTIONS (2)
  - EPISTAXIS [None]
  - EYELIDS PRURITUS [None]
